FAERS Safety Report 12381462 (Version 1)
Quarter: 2016Q2

REPORT INFORMATION
  Report Type: Spontaneous
  Country: CN (occurrence: CN)
  Receive Date: 20160518
  Receipt Date: 20160518
  Transmission Date: 20160815
  Serious: Yes (Hospitalization)
  Sender: FDA-Public Use
  Company Number: CN-BAYER-2016-094896

PATIENT
  Age: 34 Year
  Sex: Male
  Weight: 61 kg

DRUGS (2)
  1. NORMAL SALINE [Concomitant]
     Active Substance: SODIUM CHLORIDE
     Dosage: 50 ML, UNK
     Dates: start: 20160427, end: 20160427
  2. ULTRAVIST [Suspect]
     Active Substance: IOPROMIDE
     Indication: COMPUTERISED TOMOGRAM THORAX
     Dosage: 70 ML, ONCE
     Route: 042
     Dates: start: 20160427, end: 20160427

REACTIONS (8)
  - Unresponsive to stimuli [Recovering/Resolving]
  - Oxygen saturation decreased [None]
  - Loss of consciousness [Recovering/Resolving]
  - Blood pressure immeasurable [None]
  - Hyperhidrosis [None]
  - Urinary incontinence [None]
  - Dizziness [None]
  - Pallor [None]

NARRATIVE: CASE EVENT DATE: 20160427
